FAERS Safety Report 8180295-1 (Version None)
Quarter: 2012Q1

REPORT INFORMATION
  Report Type: 
  Country: None (occurrence: None)
  Receive Date: 20120229
  Receipt Date: 20120215
  Transmission Date: 20120608
  Serious: Yes (Other)
  Sender: FDA-Public Use
  Company Number: NGX_00892_2012

PATIENT
  Age: 49 Year
  Sex: Female
  Weight: 60 kg

DRUGS (6)
  1. QUTENZA [Suspect]
     Indication: NEURALGIA
     Dosage: ( 2 DF, [PATCHES, APPLIED TO THE BACK OF THE FOOT, 1 X]  TOPICAL)
     Route: 061
     Dates: start: 20111125, end: 20111125
  2. FLUOXETINE HCL [Concomitant]
  3. DULOXETIME HYDROCHLORIDE [Concomitant]
  4. BACLOFEN [Concomitant]
  5. LIDOCAINE [Concomitant]
  6. TRAMADOL HCL [Concomitant]

REACTIONS (4)
  - PAIN IN EXTREMITY [None]
  - MULTIPLE SCLEROSIS [None]
  - INFLUENZA LIKE ILLNESS [None]
  - NEURALGIA [None]
